FAERS Safety Report 7987804-3 (Version None)
Quarter: 2011Q4

REPORT INFORMATION
  Report Type: 
  Country: None (occurrence: None)
  Receive Date: 20111216
  Receipt Date: 20101206
  Transmission Date: 20120403
  Serious: Yes (Other)
  Sender: FDA-Public Use
  Company Number: US-BRISTOL-MYERS SQUIBB COMPANY-15376114

PATIENT
  Age: 58 Year
  Sex: Male

DRUGS (3)
  1. KLONOPIN [Suspect]
  2. EFFEXOR [Suspect]
     Indication: DEPRESSION
  3. ABILIFY [Suspect]
     Indication: DEPRESSION

REACTIONS (2)
  - SUICIDE ATTEMPT [None]
  - DRUG INEFFECTIVE [None]
